FAERS Safety Report 10699323 (Version 1)
Quarter: 2015Q1

REPORT INFORMATION
  Report Type: Spontaneous
  Country: KR (occurrence: KR)
  Receive Date: 20150109
  Receipt Date: 20150109
  Transmission Date: 20150721
  Serious: Yes (Hospitalization, Other)
  Sender: FDA-Public Use
  Company Number: KR-GILEAD-2015-0130276

PATIENT
  Age: 52 Year
  Sex: Female

DRUGS (2)
  1. ADEFOVIR DIPIVOXIL. [Suspect]
     Active Substance: ADEFOVIR DIPIVOXIL
     Indication: PRODUCT USED FOR UNKNOWN INDICATION
     Dosage: 10 MG, UNK
     Route: 065
     Dates: start: 2011
  2. ENTECAVIR. [Concomitant]
     Active Substance: ENTECAVIR
     Indication: PRODUCT USED FOR UNKNOWN INDICATION
     Dosage: 0.1 MG, UNK
     Dates: start: 2011

REACTIONS (9)
  - Multiple fractures [Unknown]
  - Gait disturbance [Unknown]
  - Glycosuria [Unknown]
  - Pain [Unknown]
  - Hypophosphataemia [Unknown]
  - Hypoproteinaemia [Unknown]
  - Fanconi syndrome acquired [Recovering/Resolving]
  - Metabolic acidosis [Unknown]
  - Hypokalaemia [Unknown]
